FAERS Safety Report 7344866-4 (Version None)
Quarter: 2011Q1

REPORT INFORMATION
  Report Type: 
  Country: None (occurrence: None)
  Receive Date: 20110310
  Receipt Date: 20110211
  Transmission Date: 20110831
  Serious: No
  Sender: FDA-Public Use
  Company Number: US-B.I. PHARMACEUTICALS,INC./RIDGEFIELD-2010-BP-14889BP

PATIENT
  Age: 83 Year
  Sex: Female
  Weight: 50.35 kg

DRUGS (23)
  1. COENZYME Q10 [Concomitant]
     Dosage: 100 MG
     Route: 048
  2. FLUTICASONE PROPIONATE [Concomitant]
     Route: 045
  3. NON RX SUPPLEMENTS [Concomitant]
     Route: 048
  4. ADVAIR DISKUS 100/50 [Concomitant]
     Route: 055
  5. COREG CR [Concomitant]
     Route: 048
  6. GLUCOSAMINE [Concomitant]
  7. VITAMIN D [Concomitant]
     Dosage: 800 U
     Route: 048
  8. FENTANYL TRANSDERMAL SYSTEM PATCH [Concomitant]
     Route: 062
  9. NORVASC [Concomitant]
     Dosage: 10 MG
     Route: 048
  10. OXYCODONE HCL [Concomitant]
  11. ICAPS [Concomitant]
     Route: 048
  12. NEXIUM [Concomitant]
     Dosage: 40 MG
     Route: 048
  13. PROAIR HFA [Concomitant]
     Route: 055
  14. PRADAXA [Suspect]
     Dosage: 300 MG
     Dates: start: 20101208
  15. K-DUR [Concomitant]
     Dosage: 20 MEQ
     Route: 048
  16. BENEFIBER [Concomitant]
  17. LEVOTHROID [Concomitant]
     Dosage: 125 MCG
     Route: 048
  18. ORENCIA [Concomitant]
  19. COZAAR [Concomitant]
     Dosage: 50 MG
     Route: 048
  20. METOTREXATE [Concomitant]
     Route: 048
  21. ONDANESTRON [Concomitant]
     Indication: NAUSEA
     Route: 048
  22. TYLENOL [Concomitant]
  23. WARFARIN [Concomitant]

REACTIONS (3)
  - ABDOMINAL DISCOMFORT [None]
  - DIZZINESS [None]
  - CONSTIPATION [None]
